FAERS Safety Report 4393417-5 (Version None)
Quarter: 2004Q3

REPORT INFORMATION
  Report Type: 
  Country: None (occurrence: None)
  Receive Date: 20040709
  Receipt Date: 20040701
  Transmission Date: 20050211
  Serious: Yes (Hospitalization)
  Sender: FDA-Public Use
  Company Number: JP-BRISTOL-MYERS SQUIBB COMPANY-12629895

PATIENT
  Age: 61 Year
  Sex: Female

DRUGS (2)
  1. NEUROLITE [Suspect]
     Indication: ARTERIAL STENOSIS
     Dosage: DOSE VALUE:  370 MBQ INITIALLY, THEN 740 MBQ.
     Route: 042
     Dates: start: 20030725, end: 20030725
  2. DIAMOX [Suspect]
     Route: 042
     Dates: start: 20030725, end: 20030725

REACTIONS (2)
  - HEADACHE [None]
  - VOMITING [None]
